FAERS Safety Report 12752959 (Version 1)
Quarter: 2016Q3

REPORT INFORMATION
  Report Type: Spontaneous
  Country: US (occurrence: US)
  Receive Date: 20160916
  Receipt Date: 20160916
  Transmission Date: 20161109
  Serious: No
  Sender: FDA-Public Use
  Company Number: US-AMGEN-USASP2016124166

PATIENT
  Age: 58 Year
  Sex: Male

DRUGS (3)
  1. COLCRYS [Concomitant]
     Active Substance: COLCHICINE
     Dosage: UNK
  2. ULORIC [Concomitant]
     Active Substance: FEBUXOSTAT
     Dosage: UNK
  3. ENBREL [Suspect]
     Active Substance: ETANERCEPT
     Indication: PSORIATIC ARTHROPATHY
     Dosage: 50 MG, QWK
     Route: 058
     Dates: start: 20160812

REACTIONS (1)
  - Muscle spasms [Unknown]

NARRATIVE: CASE EVENT DATE: 20160812
